FAERS Safety Report 14417677 (Version 4)
Quarter: 2018Q1

REPORT INFORMATION
  Report Type: Spontaneous
  Country: US (occurrence: US)
  Receive Date: 20180122
  Receipt Date: 20180319
  Transmission Date: 20180509
  Serious: No
  Sender: FDA-Public Use
  Company Number: US-GLAXOSMITHKLINE-US2018009441

PATIENT
  Sex: Female
  Weight: 66 kg

DRUGS (1)
  1. VENTOLIN HFA [Suspect]
     Active Substance: ALBUTEROL SULFATE
     Indication: PRODUCT USED FOR UNKNOWN INDICATION

REACTIONS (5)
  - Wrong technique in product usage process [Unknown]
  - Product storage error [Unknown]
  - Drug dose omission [Unknown]
  - Product quality issue [Unknown]
  - Intercepted medication error [Unknown]
